FAERS Safety Report 7916657-4 (Version None)
Quarter: 2011Q4

REPORT INFORMATION
  Report Type: 
  Country: None (occurrence: None)
  Receive Date: 20111116
  Receipt Date: 20111109
  Transmission Date: 20120403
  Serious: Yes (Other)
  Sender: FDA-Public Use
  Company Number: US-JNJFOC-20110909058

PATIENT
  Sex: Male
  Weight: 91.17 kg

DRUGS (7)
  1. ATRIPLA [Concomitant]
     Route: 065
  2. BACTRIM [Concomitant]
     Route: 065
  3. LASIX [Concomitant]
     Indication: OEDEMA
     Dosage: PRN
     Route: 065
  4. TAXOL [Suspect]
     Indication: PRODUCT USED FOR UNKNOWN INDICATION
     Route: 065
     Dates: start: 20110927
  5. DOXORUBICIN HCL [Suspect]
     Indication: KAPOSI'S SARCOMA
     Route: 042
  6. RESTORIL [Concomitant]
     Indication: INSOMNIA
     Route: 065
  7. ADRIAMYCIN PFS [Suspect]
     Indication: KAPOSI'S SARCOMA
     Route: 065

REACTIONS (6)
  - ADENOMA BENIGN [None]
  - FEELING ABNORMAL [None]
  - GENERALISED OEDEMA [None]
  - RETROPERITONEAL LYMPHADENOPATHY [None]
  - PRODUCT QUALITY ISSUE [None]
  - METASTASES TO LIVER [None]
